FAERS Safety Report 20735048 (Version 2)
Quarter: 2022Q2

REPORT INFORMATION
  Report Type: Spontaneous
  Country: NL (occurrence: NL)
  Receive Date: 20220421
  Receipt Date: 20220503
  Transmission Date: 20220721
  Serious: Yes (Hospitalization)
  Sender: FDA-Public Use
  Company Number: NL-TEVA-2022-NL-2028200

PATIENT
  Age: 2 Year
  Sex: Male

DRUGS (10)
  1. CISPLATIN [Suspect]
     Active Substance: CISPLATIN
     Indication: Neuroblastoma
     Dosage: DCOG-NBL 2009 MEDIUM RISK PROTOCOL
     Route: 065
  2. ETOPOSIDE [Suspect]
     Active Substance: ETOPOSIDE
     Indication: Neuroblastoma
     Dosage: DCOG-NBL 2009 MEDIUM RISK PROTOCOL
     Route: 065
  3. DOXORUBICIN [Suspect]
     Active Substance: DOXORUBICIN
     Indication: Neuroblastoma
     Dosage: DCOG-NBL 2009 MEDIUM RISK PROTOCOL
     Route: 065
  4. VINCRISTINE [Suspect]
     Active Substance: VINCRISTINE
     Indication: Neuroblastoma
     Dosage: DCOG-NBL 2009 MEDIUM RISK PROTOCOL
     Route: 065
  5. VINDESINE [Suspect]
     Active Substance: VINDESINE
     Indication: Neuroblastoma
     Dosage: DCOG-NBL 2009 MEDIUM RISK PROTOCOL
     Route: 065
  6. IFOSFAMIDE [Suspect]
     Active Substance: IFOSFAMIDE
     Indication: Neuroblastoma
     Dosage: DCOG-NBL 2009 MEDIUM RISK PROTOCOL
     Route: 065
  7. CYCLOPHOSPHAMIDE [Suspect]
     Active Substance: CYCLOPHOSPHAMIDE
     Indication: Neuroblastoma
     Dosage: DCOG-NBL 2009 MEDIUM RISK PROTOCOL
     Route: 065
  8. TRETINOIN [Suspect]
     Active Substance: TRETINOIN
     Indication: Neuroblastoma
     Dosage: DCOG-NBL 2009 MEDIUM RISK PROTOCOL
     Route: 065
  9. DACARBAZINE [Suspect]
     Active Substance: DACARBAZINE
     Indication: Neuroblastoma
     Dosage: DCOG-NBL 2009 MEDIUM RISK PROTOCOL
     Route: 065
  10. ITRACONAZOLE [Concomitant]
     Active Substance: ITRACONAZOLE
     Indication: Antifungal prophylaxis
     Dosage: 5 MG/KG DAILY;
     Route: 048

REACTIONS (1)
  - Candida infection [Recovered/Resolved]
